FAERS Safety Report 8887515 (Version 1)
Quarter: 2012Q4

REPORT INFORMATION
  Report Type: Spontaneous
  Country: US (occurrence: None)
  Receive Date: 20121101
  Receipt Date: 20121101
  Transmission Date: 20130627
  Serious: Yes (Hospitalization)
  Sender: FDA-Public Use
  Company Number: None

PATIENT
  Age: 91 Year
  Sex: Male
  Weight: 85 kg

DRUGS (12)
  1. COUMADIN [Suspect]
     Indication: AFIB
     Dosage: 4MG AND 5MG   ALTERNATING Q 48HRS. PO
CHRONIC WITH RECENT RESTART
     Route: 048
  2. LISINOPRIL [Concomitant]
  3. FINASTERIDE [Concomitant]
  4. TOPROL XL [Concomitant]
  5. CETIRIZINE [Concomitant]
  6. TERAZOSIN [Concomitant]
  7. ZOCOR [Concomitant]
  8. NASONEX [Concomitant]
  9. FLURAZEPAM [Concomitant]
  10. OMEPRAZOLE [Concomitant]
  11. ASMANEX [Concomitant]
  12. VICODON [Concomitant]

REACTIONS (3)
  - Fall [None]
  - Subdural haematoma [None]
  - Asthenia [None]
